FAERS Safety Report 5312347-5 (Version None)
Quarter: 2007Q2

REPORT INFORMATION
  Report Type: 
  Country: None (occurrence: None)
  Receive Date: 20070430
  Receipt Date: 20061107
  Transmission Date: 20071010
  Serious: No
  Sender: FDA-Public Use
  Company Number: 2006UW22168

PATIENT
  Age: 64 Year
  Sex: Male
  Weight: 86.2 kg

DRUGS (4)
  1. NEXIUM [Suspect]
     Indication: GASTRITIS EROSIVE
     Route: 048
     Dates: start: 20060301
  2. LIPITOR [Concomitant]
  3. ASPIRIN [Concomitant]
     Indication: HEADACHE
  4. ACCUPRIL [Concomitant]

REACTIONS (1)
  - GLAUCOMA [None]
